FAERS Safety Report 4422515-2 (Version None)
Quarter: 2004Q3

REPORT INFORMATION
  Report Type: 
  Country: None (occurrence: None)
  Receive Date: 20040806
  Receipt Date: 20040721
  Transmission Date: 20050211
  Serious: Yes (Other)
  Sender: FDA-Public Use
  Company Number: 199906330

PATIENT
  Age: 37 Year
  Sex: Female
  Weight: 50.8029 kg

DRUGS (1)
  1. BOTOX [Suspect]
     Indication: SKIN WRINKLING
     Dosage: 22 UNITS PRN IM
     Route: 030
     Dates: start: 19990716

REACTIONS (28)
  - ARTHRALGIA [None]
  - CHILLS [None]
  - CORNEAL REFLEX DECREASED [None]
  - DROOLING [None]
  - DYSARTHRIA [None]
  - ERYTHEMA [None]
  - EYELID PTOSIS [None]
  - FACIAL PAIN [None]
  - FACIAL PALSY [None]
  - HEADACHE [None]
  - INJECTION SITE ANAESTHESIA [None]
  - JOINT STIFFNESS [None]
  - KERATOCONJUNCTIVITIS SICCA [None]
  - LACRIMATION DECREASED [None]
  - MASTICATION DISORDER [None]
  - MUSCLE TWITCHING [None]
  - MUSCULAR WEAKNESS [None]
  - MUSCULOSKELETAL STIFFNESS [None]
  - NECK PAIN [None]
  - NEUROPATHY [None]
  - PARAESTHESIA [None]
  - SENSATION OF HEAVINESS [None]
  - SENSORY DISTURBANCE [None]
  - SINUSITIS [None]
  - SKIN SWELLING [None]
  - STRABISMUS [None]
  - VISION BLURRED [None]
  - VISUAL FIELD DEFECT [None]
